FAERS Safety Report 4878379-6 (Version None)
Quarter: 2005Q4

REPORT INFORMATION
  Report Type: 
  Country: None (occurrence: None)
  Receive Date: 20051209
  Receipt Date: 20050915
  Transmission Date: 20060501
  Serious: No
  Sender: FDA-Public Use
  Company Number: COV2-2005-00425

PATIENT
  Age: 75 Year
  Sex: Female
  Weight: 74.8 kg

DRUGS (6)
  1. FOSRENOL(LANTHANUM CARBONATE) FOSRENOL(LANTHANUM CARBONATE) TABLET CHE [Suspect]
     Indication: HYPERPHOSPHATAEMIA
     Dosage: MG, 3X/DAY:TID, ORAL
     Route: 048
  2. PLAVIX [Concomitant]
  3. TOPROL-XL [Concomitant]
  4. NORVASC /DEN/ (AMLODIPINE BESILATE) [Concomitant]
  5. INSULIN [Concomitant]
  6. LIPITOR /NET/ (ATORVASTATIN CALCIUM) [Concomitant]

REACTIONS (1)
  - GANGRENE [None]
